FAERS Safety Report 4472533-3 (Version None)
Quarter: 2004Q4

REPORT INFORMATION
  Report Type: 
  Country: None (occurrence: None)
  Receive Date: 20041007
  Receipt Date: 20040927
  Transmission Date: 20050328
  Serious: Yes (Hospitalization)
  Sender: FDA-Public Use
  Company Number: S04-USA-05888-01

PATIENT
  Age: 80 Year
  Sex: Female

DRUGS (5)
  1. LEXAPRO [Suspect]
     Indication: ANXIETY
     Dosage: 10 MG QD PO
     Route: 048
     Dates: start: 20040701
  2. LEXAPRO [Suspect]
     Indication: DEPRESSION
     Dosage: 10 MG QD PO
     Route: 048
     Dates: start: 20040701
  3. SINEMET [Suspect]
     Indication: PARKINSON'S DISEASE
     Dates: end: 20040729
  4. SINEMET [Suspect]
     Indication: PARKINSON'S DISEASE
     Dates: start: 20040730
  5. SINEMET [Suspect]
     Indication: PARKINSON'S DISEASE
     Dates: start: 20040730

REACTIONS (7)
  - BALANCE DISORDER [None]
  - CONCUSSION [None]
  - CONFUSIONAL STATE [None]
  - DIFFICULTY IN WALKING [None]
  - DRUG INTERACTION [None]
  - FALL [None]
  - MENTAL STATUS CHANGES [None]
